FAERS Safety Report 5345951-9 (Version None)
Quarter: 2007Q2

REPORT INFORMATION
  Report Type: 
  Country: None (occurrence: None)
  Receive Date: 20070605
  Receipt Date: 20070529
  Transmission Date: 20071010
  Serious: Yes (Other)
  Sender: FDA-Public Use
  Company Number: B0473692A

PATIENT
  Age: 66 Year
  Sex: Male

DRUGS (1)
  1. AUGMENTIN '125' [Suspect]
     Indication: URINARY TRACT INFECTION
     Dosage: 625MG THREE TIMES PER DAY
     Route: 065

REACTIONS (3)
  - CONVULSION [None]
  - EXTRAPYRAMIDAL DISORDER [None]
  - MYOCLONUS [None]
